FAERS Safety Report 9002248 (Version 1)
Quarter: 2013Q1

REPORT INFORMATION
  Report Type: Spontaneous
  Country: US (occurrence: US)
  Receive Date: 20130107
  Receipt Date: 20130107
  Transmission Date: 20140127
  Serious: Yes (Hospitalization)
  Sender: FDA-Public Use
  Company Number: US-BAYER-2013-000549

PATIENT
  Age: 21 Year
  Sex: Female
  Weight: 98 kg

DRUGS (10)
  1. OCELLA [Suspect]
  2. YASMIN [Suspect]
  3. PHENERGAN [Concomitant]
     Dosage: 25 MG ONE TABOR SUPPOSITORY, Q 8 HRS
     Route: 054
     Dates: start: 20090916
  4. PEPCID [Concomitant]
     Dosage: 20 MG ONE TABLET, Q 12 HRS
     Route: 048
     Dates: start: 20090916
  5. CIPRO [Concomitant]
     Dosage: 500 MG ONE TABLET, Q 12 HRS FOR 10 DAYS
     Route: 048
     Dates: start: 20090916
  6. BENTYL [Concomitant]
     Dosage: 20 MG ONE TABLET, Q 6 HRS
     Route: 048
     Dates: start: 20090916
  7. FLUID [Concomitant]
     Route: 042
  8. ORAL CONTRACEPTIVE NOS [Concomitant]
  9. AZITHROMYCIN [Concomitant]
  10. OXYCODONE [Concomitant]

REACTIONS (1)
  - Pulmonary embolism [None]
